FAERS Safety Report 8432296 (Version 4)
Quarter: 2012Q4

REPORT INFORMATION
  Report Type: 
  Country: US (occurrence: US)
  Receive Date: 20120229
  Receipt Date: 20120907
  Transmission Date: 20130627
  Serious: Yes (Hospitalization, Other)
  Sender: FDA-Public Use
  Company Number: US-JNJFOC-20120213002

PATIENT
  Sex: Female

DRUGS (3)
  1. ORTHO NOVUM 1/35 [Suspect]
     Indication: CONTRACEPTION
     Route: 048
  2. ORTHO NOVUM 1/35 [Suspect]
     Indication: CONTRACEPTION
     Route: 048
  3. VICRIVIROC [Suspect]
     Indication: PRODUCT USED FOR UNKNOWN INDICATION
     Route: 048

REACTIONS (2)
  - Electrocardiogram QT prolonged [Recovered/Resolved]
  - Drug administration error [Unknown]
